FAERS Safety Report 24853832 (Version 1)
Quarter: 2025Q1

REPORT INFORMATION
  Report Type: Spontaneous
  Country: US (occurrence: US)
  Receive Date: 20250117
  Receipt Date: 20250117
  Transmission Date: 20250409
  Serious: Yes (Other)
  Sender: TEVA
  Company Number: US-TEVA-VS-3285041

PATIENT
  Age: 58 Year
  Sex: Female

DRUGS (2)
  1. PREDNISONE [Suspect]
     Active Substance: PREDNISONE
     Indication: Product used for unknown indication
     Route: 065
  2. LUPKYNIS [Suspect]
     Active Substance: VOCLOSPORIN
     Indication: Lupus nephritis
     Route: 048
     Dates: start: 20231202

REACTIONS (5)
  - Osteonecrosis [Unknown]
  - Rotator cuff syndrome [Unknown]
  - Blood folate decreased [Unknown]
  - White blood cell count decreased [Unknown]
  - Fatigue [Unknown]
